FAERS Safety Report 5801030-5 (Version None)
Quarter: 2008Q3

REPORT INFORMATION
  Report Type: 
  Country: None (occurrence: None)
  Receive Date: 20080704
  Receipt Date: 20080603
  Transmission Date: 20090109
  Serious: No
  Sender: FDA-Public Use
  Company Number: US-BAYER-200815022NA

PATIENT
  Age: 31 Year
  Sex: Female
  Weight: 54 kg

DRUGS (1)
  1. MIRENA [Suspect]
     Indication: CONTRACEPTION
     Route: 015
     Dates: start: 20060101, end: 20080214

REACTIONS (6)
  - AMENORRHOEA [None]
  - CHILLS [None]
  - GENITAL HAEMORRHAGE [None]
  - HEADACHE [None]
  - MOOD ALTERED [None]
  - VAGINAL DISCHARGE [None]
